FAERS Safety Report 23324361 (Version 2)
Quarter: 2023Q4

REPORT INFORMATION
  Report Type: Other
  Country: US (occurrence: None)
  Receive Date: 20231221
  Receipt Date: 20231228
  Transmission Date: 20240109
  Serious: Yes (Hospitalization)
  Sender: FDA-Public Use
  Company Number: US-ROCHE-3476486

PATIENT
  Age: 72 Year
  Sex: Female
  Weight: 90.8 kg

DRUGS (2)
  1. OCREVUS [Suspect]
     Active Substance: OCRELIZUMAB
     Indication: Primary progressive multiple sclerosis
     Dosage: DATE OF TREATMENT : 12/FEB/2019, 25/FEB/2023
     Route: 042
     Dates: start: 2016
  2. BACLOFEN [Concomitant]
     Active Substance: BACLOFEN
     Indication: Tremor
     Dosage: TAKES 3 TABLETS OF 10MG^S 3 TIMES A DAY
     Route: 048
     Dates: start: 2016

REACTIONS (7)
  - Infection [Not Recovered/Not Resolved]
  - Wound [Not Recovered/Not Resolved]
  - Fungal infection [Unknown]
  - COVID-19 [Unknown]
  - Thrombosis [Unknown]
  - Haematological infection [Unknown]
  - Osteomyelitis [Unknown]

NARRATIVE: CASE EVENT DATE: 20230401
